FAERS Safety Report 18726345 (Version 3)
Quarter: 2021Q1

REPORT INFORMATION
  Report Type: Report from Study
  Country: US (occurrence: US)
  Receive Date: 20210111
  Receipt Date: 20210128
  Transmission Date: 20210419
  Serious: Yes (Other)
  Sender: FDA-Public Use
  Company Number: NVSC2021US001323

PATIENT
  Sex: Female

DRUGS (6)
  1. LISINOPRIL. [Suspect]
     Active Substance: LISINOPRIL
     Indication: PRODUCT USED FOR UNKNOWN INDICATION
     Dosage: UNK
     Route: 065
  2. SPIRONOLACTONE. [Suspect]
     Active Substance: SPIRONOLACTONE
     Indication: PRODUCT USED FOR UNKNOWN INDICATION
     Dosage: UNK
     Route: 065
  3. ENTRESTO [Suspect]
     Active Substance: SACUBITRIL\VALSARTAN
     Dosage: UNK
     Route: 048
  4. COREG [Suspect]
     Active Substance: CARVEDILOL
     Indication: PRODUCT USED FOR UNKNOWN INDICATION
     Dosage: UNK
     Route: 065
  5. ENTRESTO [Suspect]
     Active Substance: SACUBITRIL\VALSARTAN
     Indication: PRODUCT USED FOR UNKNOWN INDICATION
     Dosage: 1 DF, BID
     Route: 048
  6. BUMEX [Suspect]
     Active Substance: BUMETANIDE
     Indication: PRODUCT USED FOR UNKNOWN INDICATION
     Dosage: UNK
     Route: 065

REACTIONS (22)
  - Musculoskeletal stiffness [Unknown]
  - Middle insomnia [Unknown]
  - Cardiac stress test abnormal [Recovering/Resolving]
  - Palpitations [Unknown]
  - Abdominal pain upper [Unknown]
  - Headache [Unknown]
  - Fatigue [Recovering/Resolving]
  - Left ventricular failure [Unknown]
  - Coronary artery occlusion [Unknown]
  - Feeling abnormal [Unknown]
  - Ejection fraction decreased [Unknown]
  - Amnesia [Unknown]
  - Weight increased [Unknown]
  - Bundle branch block left [Unknown]
  - Back pain [Unknown]
  - Fluid retention [Unknown]
  - Defaecation urgency [Unknown]
  - Cough [Unknown]
  - Exercise tolerance decreased [Unknown]
  - Myocardial fibrosis [Unknown]
  - Pollakiuria [Unknown]
  - Dyspnoea exertional [Recovering/Resolving]
